FAERS Safety Report 6370774-1 (Version None)
Quarter: 2009Q3

REPORT INFORMATION
  Report Type: 
  Country: None (occurrence: None)
  Receive Date: 20090921
  Receipt Date: 20090921
  Transmission Date: 20100115
  Serious: Yes (Other)
  Sender: FDA-Public Use
  Company Number: None

PATIENT
  Age: 38 Year
  Sex: Female
  Weight: 77.1115 kg

DRUGS (2)
  1. PAROXETINE HCL [Suspect]
     Indication: ANXIETY
     Dosage: 1/2 TABLET 1 TIME DAY PO
     Route: 048
     Dates: start: 20070220, end: 20090814
  2. PAROXETINE HCL [Suspect]
     Indication: POSTPARTUM DISORDER
     Dosage: 1/2 TABLET 1 TIME DAY PO
     Route: 048
     Dates: start: 20070220, end: 20090814

REACTIONS (11)
  - ABNORMAL DREAMS [None]
  - ANXIETY [None]
  - DIZZINESS [None]
  - FATIGUE [None]
  - FEELING ABNORMAL [None]
  - HYPERHIDROSIS [None]
  - IRRITABILITY [None]
  - MOOD SWINGS [None]
  - POOR QUALITY SLEEP [None]
  - SLEEP DISORDER [None]
  - TREMOR [None]
